FAERS Safety Report 14013307 (Version 1)
Quarter: 2017Q3

REPORT INFORMATION
  Report Type: Spontaneous
  Country: US (occurrence: US)
  Receive Date: 20170926
  Receipt Date: 20170926
  Transmission Date: 20171128
  Serious: No
  Sender: FDA-Public Use
  Company Number: PHEH2017US030391

PATIENT
  Sex: Female

DRUGS (1)
  1. ISOSORBIDE DINITRATE TABLETS, USP [Suspect]
     Active Substance: ISOSORBIDE DINITRATE
     Indication: VASODILATATION
     Dosage: UNK
     Route: 065

REACTIONS (1)
  - Blood pressure decreased [Unknown]
